FAERS Safety Report 24528482 (Version 2)
Quarter: 2024Q4

REPORT INFORMATION
  Report Type: Spontaneous
  Country: IN (occurrence: IN)
  Receive Date: 20241021
  Receipt Date: 20241024
  Transmission Date: 20250115
  Serious: Yes (Other)
  Sender: PFIZER
  Company Number: IN-MLMSERVICE-20241008-PI221370-00270-1

PATIENT
  Age: 5 Year
  Sex: Female

DRUGS (5)
  1. METHYLPREDNISOLONE [Suspect]
     Active Substance: METHYLPREDNISOLONE
     Indication: Multisystem inflammatory syndrome in children
     Dosage: 250 MG, 1X/DAY
  2. PREDNISOLONE [Suspect]
     Active Substance: PREDNISOLONE
     Indication: Multisystem inflammatory syndrome in children
     Dosage: 5 MG, ONCE AT NIGHT
  3. DEXAMETHASONE [Suspect]
     Active Substance: DEXAMETHASONE
     Indication: Multisystem inflammatory syndrome in children
     Dosage: 0.6 ML, 3X/DAY
  4. ASPIRIN [Concomitant]
     Active Substance: ASPIRIN
     Dosage: 75 MG AND 150 MG ON ALTERNATE DAYS
  5. ASPIRIN [Concomitant]
     Active Substance: ASPIRIN
     Dosage: 75 MG AND 150 MG ON ALTERNATE DAYS

REACTIONS (9)
  - Psychotic disorder [Unknown]
  - Aggression [Unknown]
  - Hallucination, visual [Unknown]
  - Self-destructive behaviour [Unknown]
  - Tooth loss [Unknown]
  - Osteomyelitis [Recovered/Resolved]
  - Osteonecrosis of jaw [Recovered/Resolved]
  - Generalised oedema [Unknown]
  - Off label use [Recovered/Resolved]
